FAERS Safety Report 13247848 (Version 1)
Quarter: 2017Q1

REPORT INFORMATION
  Report Type: Report from Study
  Country: None (occurrence: GB)
  Receive Date: 20170217
  Receipt Date: 20170217
  Transmission Date: 20170428
  Serious: Yes (Other)
  Sender: FDA-Public Use
  Company Number: GB-ABBVIE-17P-167-1842018-00

PATIENT
  Age: 80 Year
  Sex: Female
  Weight: 84 kg

DRUGS (6)
  1. SIMVASTATIN. [Concomitant]
     Active Substance: SIMVASTATIN
     Indication: PRODUCT USED FOR UNKNOWN INDICATION
  2. FOLIC ACID. [Concomitant]
     Active Substance: FOLIC ACID
     Indication: PRODUCT USED FOR UNKNOWN INDICATION
  3. VENETOCLAX [Suspect]
     Active Substance: VENETOCLAX
     Route: 048
     Dates: start: 20170123
  4. VITAMIN B12 [Concomitant]
     Active Substance: CYANOCOBALAMIN
     Indication: PRODUCT USED FOR UNKNOWN INDICATION
     Route: 050
  5. VENETOCLAX [Suspect]
     Active Substance: VENETOCLAX
     Indication: LEUKAEMIC LYMPHOMA
     Route: 048
     Dates: start: 20170112, end: 20170113
  6. VENETOCLAX [Suspect]
     Active Substance: VENETOCLAX
     Indication: SPLENIC MARGINAL ZONE LYMPHOMA
     Route: 048
     Dates: start: 20170116

REACTIONS (7)
  - Laboratory test abnormal [Unknown]
  - Tumour lysis syndrome [Unknown]
  - Pain [Unknown]
  - Headache [Unknown]
  - Blood uric acid increased [Unknown]
  - Blood phosphorus increased [Unknown]
  - Diarrhoea [Unknown]

NARRATIVE: CASE EVENT DATE: 201701
